FAERS Safety Report 6539047-8 (Version None)
Quarter: 2010Q1

REPORT INFORMATION
  Report Type: 
  Country: None (occurrence: None)
  Receive Date: 20100115
  Receipt Date: 20100106
  Transmission Date: 20100710
  Serious: Yes (Other)
  Sender: FDA-Public Use
  Company Number: PHEH2009US17916

PATIENT
  Age: 11 Year
  Sex: Male
  Weight: 60 kg

DRUGS (1)
  1. GLEEVEC [Suspect]
     Indication: CHRONIC MYELOID LEUKAEMIA
     Dosage: 600 MG, QD
     Route: 048
     Dates: start: 20070501, end: 20091201

REACTIONS (6)
  - BONE MARROW NECROSIS [None]
  - GAIT DISTURBANCE [None]
  - JOINT SWELLING [None]
  - OEDEMA PERIPHERAL [None]
  - PAIN IN EXTREMITY [None]
  - SCAN BONE MARROW ABNORMAL [None]
